FAERS Safety Report 6139866-6 (Version None)
Quarter: 2009Q1

REPORT INFORMATION
  Report Type: 
  Country: None (occurrence: None)
  Receive Date: 20090324
  Receipt Date: 20090313
  Transmission Date: 20090719
  Serious: Yes (Disabling, Other)
  Sender: FDA-Public Use
  Company Number: 2007BM000205

PATIENT
  Age: 7 Year
  Sex: Male
  Weight: 14.6 kg

DRUGS (7)
  1. NAGLAZYME [Suspect]
     Indication: MUCOPOLYSACCHARIDOSIS VI
     Dosage: 1.5 ML; QM; INTH, 15 MG; X1; IV, 1.5 ML; X1; INTH, 1 ML/KG; QW; IV, ; INTH
     Dates: start: 20070101, end: 20070101
  2. NAGLAZYME [Suspect]
     Indication: MUCOPOLYSACCHARIDOSIS VI
     Dosage: 1.5 ML; QM; INTH, 15 MG; X1; IV, 1.5 ML; X1; INTH, 1 ML/KG; QW; IV, ; INTH
     Dates: start: 20070316, end: 20070622
  3. NAGLAZYME [Suspect]
     Indication: MUCOPOLYSACCHARIDOSIS VI
     Dosage: 1.5 ML; QM; INTH, 15 MG; X1; IV, 1.5 ML; X1; INTH, 1 ML/KG; QW; IV, ; INTH
     Dates: start: 20071108, end: 20071108
  4. NAGLAZYME [Suspect]
     Indication: MUCOPOLYSACCHARIDOSIS VI
     Dosage: 1.5 ML; QM; INTH, 15 MG; X1; IV, 1.5 ML; X1; INTH, 1 ML/KG; QW; IV, ; INTH
     Dates: start: 20071122, end: 20071122
  5. NAGLAZYME [Suspect]
     Indication: MUCOPOLYSACCHARIDOSIS VI
     Dosage: 1.5 ML; QM; INTH, 15 MG; X1; IV, 1.5 ML; X1; INTH, 1 ML/KG; QW; IV, ; INTH
     Dates: start: 20071220, end: 20071220
  6. NAGLAZYME [Suspect]
     Indication: MUCOPOLYSACCHARIDOSIS VI
     Dosage: 1.5 ML; QM; INTH, 15 MG; X1; IV, 1.5 ML; X1; INTH, 1 ML/KG; QW; IV, ; INTH
     Dates: end: 20080320
  7. NAGLAZYME [Suspect]
     Indication: MUCOPOLYSACCHARIDOSIS VI
     Dosage: 1.5 ML; QM; INTH, 15 MG; X1; IV, 1.5 ML; X1; INTH, 1 ML/KG; QW; IV, ; INTH
     Dates: start: 20081201

REACTIONS (14)
  - ARTHROPATHY [None]
  - CLONUS [None]
  - GAIT DISTURBANCE [None]
  - HEPATOSPLENOMEGALY [None]
  - HYPERREFLEXIA [None]
  - HYPOTONIA [None]
  - INCONTINENCE [None]
  - MENINGITIS [None]
  - MOVEMENT DISORDER [None]
  - MUSCLE SPASTICITY [None]
  - MUSCULAR WEAKNESS [None]
  - OXYGEN SATURATION DECREASED [None]
  - SLEEP APNOEA SYNDROME [None]
  - UPPER AIRWAY OBSTRUCTION [None]
